FAERS Safety Report 13849693 (Version 1)
Quarter: 2017Q3

REPORT INFORMATION
  Report Type: Spontaneous
  Country: CN (occurrence: CN)
  Receive Date: 20170809
  Receipt Date: 20170809
  Transmission Date: 20171127
  Serious: Yes (Other)
  Sender: FDA-Public Use
  Company Number: CN-TAKEDA-2017MPI006816

PATIENT

DRUGS (3)
  1. THALIDOMIDE [Suspect]
     Active Substance: THALIDOMIDE
     Indication: PLASMA CELL MYELOMA
     Dosage: 200 MG, UNK
     Route: 048
  2. VELCADE [Suspect]
     Active Substance: BORTEZOMIB
     Indication: PLASMA CELL MYELOMA
     Dosage: 1.3 MG/M2, UNK
     Route: 040
  3. DEXAMETHASONE. [Suspect]
     Active Substance: DEXAMETHASONE
     Indication: PLASMA CELL MYELOMA
     Dosage: 40 MG, QD
     Route: 048

REACTIONS (19)
  - Neutropenia [Unknown]
  - Pneumonia [Unknown]
  - Tonsillitis [Unknown]
  - Thrombocytopenia [Recovered/Resolved]
  - Anaemia [Unknown]
  - Pharyngitis [Unknown]
  - Rhinitis [Unknown]
  - Febrile bone marrow aplasia [Unknown]
  - Respiratory tract infection bacterial [Unknown]
  - Herpes zoster [Unknown]
  - Bronchitis [Unknown]
  - Upper respiratory tract infection [Unknown]
  - Urinary tract infection [Unknown]
  - Nasopharyngitis [Unknown]
  - Febrile neutropenia [Unknown]
  - Fatigue [Unknown]
  - Rash [Unknown]
  - Gastrointestinal disorder [Unknown]
  - Neuropathy peripheral [Unknown]
